FAERS Safety Report 4750254-7 (Version None)
Quarter: 2005Q3

REPORT INFORMATION
  Report Type: 
  Country: None (occurrence: None)
  Receive Date: 20050818
  Receipt Date: 20050803
  Transmission Date: 20060218
  Serious: Yes (Hospitalization, Other)
  Sender: FDA-Public Use
  Company Number: 11991

PATIENT
  Age: 3 Year
  Sex: Male

DRUGS (1)
  1. METHOTREXATE [Suspect]
     Dosage: 12 MG DAILY IT
     Route: 038
     Dates: start: 20050429, end: 20050429

REACTIONS (5)
  - DYSAESTHESIA [None]
  - INFUSION RELATED REACTION [None]
  - MUSCULOSKELETAL DISORDER [None]
  - NEUROGENIC BLADDER [None]
  - PAIN [None]
